FAERS Safety Report 16225212 (Version 2)
Quarter: 2019Q3

REPORT INFORMATION
  Report Type: Report from Study
  Country: DE (occurrence: DE)
  Receive Date: 20190422
  Receipt Date: 20190902
  Transmission Date: 20191004
  Serious: Yes (Death)
  Sender: FDA-Public Use
  Company Number: DE-PFIZER INC-2019169226

PATIENT

DRUGS (4)
  1. EPIRUBICIN HCL [Suspect]
     Active Substance: EPIRUBICIN HYDROCHLORIDE
     Indication: ADENOCARCINOMA
     Dosage: 50 MG/M2, CYCLIC (ON DAY 1, THREE PREOPERATIVE CYCLES FOLLOWED BY THREE POSTOPERATIVE CYCLES)
  2. CISPLATIN. [Suspect]
     Active Substance: CISPLATIN
     Indication: ADENOCARCINOMA
     Dosage: 60 MG/M2, CYCLIC (ON DAY 1, THREE PREOPERATIVE CYCLES FOLLOWED BY THREE POSTOPERATIVE CYCLES)
  3. CAPECITABINE. [Suspect]
     Active Substance: CAPECITABINE
     Indication: ADENOCARCINOMA
     Dosage: 1250 MG/M2, CYCLIC (ON DAYS 1 TO 21, 3 PREOPERATIVE CYCLES FOLLOWED BY 3 POSTOPERATIVE CYCLES)
     Route: 048
  4. FLUOROURACIL. [Suspect]
     Active Substance: FLUOROURACIL
     Indication: ADENOCARCINOMA
     Dosage: 200 MG/M2, CYCLIC (ON DAYS 1 TO 21, 3 PREOPERATIVE CYCLES FOLLOWED BY 3 POSTOPERATIVE CYCLES)
     Route: 042

REACTIONS (1)
  - Death [Fatal]
